FAERS Safety Report 13657732 (Version 1)
Quarter: 2017Q2

REPORT INFORMATION
  Report Type: Other
  Country: US (occurrence: US)
  Receive Date: 20170615
  Receipt Date: 20170615
  Transmission Date: 20170830
  Serious: Yes (Other)
  Sender: FDA-Public Use
  Company Number: US-SIM_00768_2017

PATIENT
  Sex: Female

DRUGS (3)
  1. COMPLETE EYE RELIEF, 10 ML (HOMEOPATHIC) [Suspect]
     Active Substance: HOMEOPATHICS
     Indication: OCULAR HYPERAEMIA
     Dosage: 2 DROPS/PRN/
     Route: 047
     Dates: start: 20170524, end: 20170527
  2. COMPLETE EYE RELIEF, 10 ML (HOMEOPATHIC) [Suspect]
     Active Substance: HOMEOPATHICS
     Indication: FOREIGN BODY SENSATION IN EYES
     Dosage: 2 DROPS/PRN/
     Route: 047
     Dates: start: 20170524, end: 20170527
  3. COMPLETE EYE RELIEF, 10 ML (HOMEOPATHIC) [Suspect]
     Active Substance: HOMEOPATHICS
     Indication: EYE IRRITATION
     Dosage: 2 DROPS/PRN/
     Route: 047
     Dates: start: 20170524, end: 20170527

REACTIONS (5)
  - Superficial injury of eye [Unknown]
  - Impaired healing [Unknown]
  - Dry eye [Unknown]
  - Mydriasis [Unknown]
  - Photophobia [Unknown]

NARRATIVE: CASE EVENT DATE: 201705
